FAERS Safety Report 10231071 (Version 1)
Quarter: 2014Q2

REPORT INFORMATION
  Report Type: Spontaneous
  Country: ES (occurrence: ES)
  Receive Date: 20140611
  Receipt Date: 20140611
  Transmission Date: 20141212
  Serious: Yes (Other)
  Sender: FDA-Public Use
  Company Number: ES-BRISTOL-MYERS SQUIBB COMPANY-20936803

PATIENT
  Age: 82 Year
  Sex: Male

DRUGS (1)
  1. APIXABAN [Suspect]
     Indication: CEREBROVASCULAR ACCIDENT PROPHYLAXIS
     Dosage: UNTIL 12MAY2014
     Dates: start: 20140310

REACTIONS (1)
  - Microcytic anaemia [Unknown]
